FAERS Safety Report 22172354 (Version 2)
Quarter: 2023Q2

REPORT INFORMATION
  Report Type: Spontaneous
  Country: US (occurrence: US)
  Receive Date: 20230404
  Receipt Date: 20230512
  Transmission Date: 20230721
  Serious: Yes (Other)
  Sender: FDA-Public Use
  Company Number: US-PFIZER INC-PV202300060311

PATIENT
  Age: 64 Year
  Sex: Female

DRUGS (1)
  1. XELJANZ [Suspect]
     Active Substance: TOFACITINIB CITRATE
     Indication: Crohn^s disease
     Dosage: UNK

REACTIONS (9)
  - Haematochezia [Recovered/Resolved]
  - Therapeutic product effect decreased [Unknown]
  - Off label use [Unknown]
  - Diarrhoea [Unknown]
  - Generalised oedema [Unknown]
  - Urine output decreased [Unknown]
  - Joint stiffness [Unknown]
  - Fluid retention [Unknown]
  - Brain fog [Unknown]

NARRATIVE: CASE EVENT DATE: 20230509
